FAERS Safety Report 7797360-0 (Version None)
Quarter: 2011Q4

REPORT INFORMATION
  Report Type: 
  Country: None (occurrence: None)
  Receive Date: 20111005
  Receipt Date: 20110927
  Transmission Date: 20120403
  Serious: Yes (Other)
  Sender: FDA-Public Use
  Company Number: US-RB-032410-11

PATIENT
  Age: 42 Year
  Sex: Female

DRUGS (2)
  1. SUBOXONE [Suspect]
     Indication: DRUG DEPENDENCE
     Dosage: DOSE RANGES FROM 4-8 MG DAILY
     Route: 060
     Dates: start: 20101001
  2. SUBOXONE [Suspect]
     Indication: DRUG DEPENDENCE
     Dosage: 4-8 MG DAILY
     Route: 060
     Dates: start: 20070101, end: 20101001

REACTIONS (2)
  - LEUKAEMIC LYMPHOMA [None]
  - PROCEDURAL PAIN [None]
